FAERS Safety Report 6643045-3 (Version None)
Quarter: 2010Q1

REPORT INFORMATION
  Report Type: 
  Country: None (occurrence: None)
  Receive Date: 20100319
  Receipt Date: 20100316
  Transmission Date: 20100710
  Serious: Yes (Other)
  Sender: FDA-Public Use
  Company Number: D0066899A

PATIENT
  Sex: Female
  Weight: 79 kg

DRUGS (4)
  1. PANDEMRIX H1N1 [Suspect]
     Indication: PROPHYLAXIS
     Dosage: 1ML SINGLE DOSE
     Route: 030
     Dates: start: 20091210, end: 20091210
  2. VIANI DISKUS [Suspect]
     Dosage: 2PUFF PER DAY
     Route: 055
  3. SALBUTAMOL (BRONCHOSPRAY) [Suspect]
     Dosage: 2PUFF PER DAY
     Route: 055
  4. PREDNISOLON [Suspect]
     Route: 065
     Dates: start: 20091226, end: 20091228

REACTIONS (2)
  - CONVULSION [None]
  - OVERDOSE [None]
